FAERS Safety Report 7979527-1 (Version None)
Quarter: 2011Q4

REPORT INFORMATION
  Report Type: 
  Country: None (occurrence: None)
  Receive Date: 20111209
  Receipt Date: 20111128
  Transmission Date: 20120403
  Serious: Yes (Other)
  Sender: FDA-Public Use
  Company Number: DSA_47697_2011

PATIENT
  Age: 61 Year
  Sex: Male
  Weight: 105.2 kg

DRUGS (12)
  1. SIMVASTATIN [Suspect]
     Indication: SUPRAVENTRICULAR TACHYCARDIA
     Dosage: (80 MG DAILY ORAL)
     Route: 048
  2. SIMVASTATIN [Suspect]
     Indication: ATRIAL FIBRILLATION
     Dosage: (80 MG DAILY ORAL)
     Route: 048
  3. ATENOLOL [Concomitant]
  4. EZETIMIBE [Concomitant]
  5. DILTIAZEM [Suspect]
     Indication: SUPRAVENTRICULAR TACHYCARDIA
     Dosage: (240 MG DAILY ORAL)
     Route: 048
  6. DILTIAZEM [Suspect]
     Indication: ATRIAL FIBRILLATION
     Dosage: (240 MG DAILY ORAL)
     Route: 048
  7. ASPIRIN [Concomitant]
  8. PANTOPRAZOLE [Concomitant]
  9. TESTOSTERONE [Concomitant]
  10. ATORVASTATIN [Suspect]
     Indication: ATRIAL FIBRILLATION
     Dosage: (40 MG DAILY ORAL)
     Route: 048
  11. ATORVASTATIN [Suspect]
     Indication: SUPRAVENTRICULAR TACHYCARDIA
     Dosage: (40 MG DAILY ORAL)
     Route: 048
  12. CITALOPRAM HYDROBROMIDE [Suspect]
     Indication: PRODUCT USED FOR UNKNOWN INDICATION
     Dosage: (10 MG DAILY ORAL)
     Route: 048

REACTIONS (10)
  - MYOCLONUS [None]
  - HICCUPS [None]
  - DYSKINESIA [None]
  - TRANSFERRIN SATURATION DECREASED [None]
  - ATRIAL FIBRILLATION [None]
  - ARRHYTHMIA [None]
  - DRUG INTERACTION [None]
  - HYPERVENTILATION [None]
  - SLEEP APNOEA SYNDROME [None]
  - CONVULSION [None]
